FAERS Safety Report 16646232 (Version 3)
Quarter: 2019Q3

REPORT INFORMATION
  Report Type: Spontaneous
  Country: CA (occurrence: CA)
  Receive Date: 20190730
  Receipt Date: 20190827
  Transmission Date: 20191004
  Serious: Yes (Other)
  Sender: FDA-Public Use
  Company Number: CA-TEVA-2019-CA-1083397

PATIENT
  Sex: Female

DRUGS (3)
  1. TEVA GABAPENTIN [Suspect]
     Active Substance: GABAPENTIN
     Indication: DRUG WITHDRAWAL SYNDROME
     Dosage: 600 MILLIGRAM DAILY; INDICATION: TO GET OFF BENZODIAZEPINES ; ONGOING
     Dates: start: 201804
  2. VALIUM [Concomitant]
     Active Substance: DIAZEPAM
     Dosage: ONGOING
  3. LEVOTHYROXINE COMPOUNDED [Concomitant]
     Dosage: ONGOING

REACTIONS (17)
  - Autoimmune thyroiditis [Not Recovered/Not Resolved]
  - Product use complaint [Unknown]
  - Weight decreased [Not Recovered/Not Resolved]
  - Tinnitus [Not Recovered/Not Resolved]
  - Rash [Not Recovered/Not Resolved]
  - Drug hypersensitivity [Unknown]
  - Dysgeusia [Unknown]
  - Withdrawal syndrome [Not Recovered/Not Resolved]
  - Urticaria [Not Recovered/Not Resolved]
  - Reaction to excipient [Not Recovered/Not Resolved]
  - Rhinorrhoea [Not Recovered/Not Resolved]
  - Off label use [Not Recovered/Not Resolved]
  - Wrong technique in product usage process [Not Recovered/Not Resolved]
  - Adverse drug reaction [Not Recovered/Not Resolved]
  - Depression [Not Recovered/Not Resolved]
  - Cystitis [Not Recovered/Not Resolved]
  - Loss of consciousness [Not Recovered/Not Resolved]
